FAERS Safety Report 7038071-9 (Version None)
Quarter: 2010Q4

REPORT INFORMATION
  Report Type: 
  Country: None (occurrence: None)
  Receive Date: 20101011
  Receipt Date: 20100929
  Transmission Date: 20110411
  Serious: Yes (Other)
  Sender: FDA-Public Use
  Company Number: FR-PFIZER INC-2010124040

PATIENT
  Sex: Male

DRUGS (1)
  1. CAVERJECT DUAL [Suspect]
     Dosage: UNK

REACTIONS (3)
  - BURNING SENSATION [None]
  - ERECTILE DYSFUNCTION [None]
  - PENIS DISORDER [None]
